FAERS Safety Report 24900714 (Version 1)
Quarter: 2025Q1

REPORT INFORMATION
  Report Type: Report from Study
  Country: US (occurrence: US)
  Receive Date: 20250129
  Receipt Date: 20250129
  Transmission Date: 20250409
  Serious: Yes (Hospitalization, Other)
  Sender: MYLAN
  Company Number: US-MYLANLABS-2025M1007038

PATIENT
  Age: 82 Year
  Sex: Male

DRUGS (7)
  1. VIAGRA [Interacting]
     Active Substance: SILDENAFIL CITRATE
     Indication: Erectile dysfunction
     Route: 065
  2. ORGOVYX [Interacting]
     Active Substance: RELUGOLIX
     Indication: Prostate cancer
     Route: 048
     Dates: start: 20230916, end: 20230916
  3. ORGOVYX [Interacting]
     Active Substance: RELUGOLIX
     Dosage: 120 MILLIGRAM, QD(DAILY)
     Route: 048
     Dates: start: 20230917
  4. COENZYME Q10 [Concomitant]
     Active Substance: DIETARY SUPPLEMENT\UBIDECARENONE
     Route: 065
  5. VITAMIN B12 [Concomitant]
     Active Substance: CYANOCOBALAMIN
     Route: 065
  6. FUROSEMIDE [Concomitant]
     Active Substance: FUROSEMIDE
     Route: 065
  7. BREO ELLIPTA [Concomitant]
     Active Substance: FLUTICASONE FUROATE\VILANTEROL TRIFENATATE
     Route: 065

REACTIONS (6)
  - Pneumonia [Unknown]
  - Hot flush [Not Recovered/Not Resolved]
  - Urinary incontinence [Recovering/Resolving]
  - Dysuria [Recovering/Resolving]
  - Drug interaction [Unknown]
  - Drug ineffective [Unknown]
